FAERS Safety Report 14271093 (Version 2)
Quarter: 2018Q3

REPORT INFORMATION
  Report Type: Spontaneous
  Country: JP (occurrence: JP)
  Receive Date: 20171211
  Receipt Date: 20180807
  Transmission Date: 20181010
  Serious: Yes (Other)
  Sender: FDA-Public Use
  Company Number: JP-OTSUKA-2016_002481

PATIENT
  Age: 37 Year
  Sex: Female

DRUGS (9)
  1. ABILIFY [Suspect]
     Active Substance: ARIPIPRAZOLE
     Dosage: 24 MG, QD
     Route: 067
     Dates: start: 201303, end: 20130326
  2. ABILIFY [Suspect]
     Active Substance: ARIPIPRAZOLE
     Dosage: 6 MG, QD
     Route: 067
     Dates: start: 20121107, end: 20121204
  3. ABILIFY [Suspect]
     Active Substance: ARIPIPRAZOLE
     Dosage: 18 MG, QD
     Route: 067
     Dates: start: 20121226, end: 20130108
  4. ABILIFY [Suspect]
     Active Substance: ARIPIPRAZOLE
     Indication: SCHIZOPHRENIA
     Dosage: 12 MG, QD
     Route: 067
     Dates: start: 20101224, end: 20110112
  5. ABILIFY [Suspect]
     Active Substance: ARIPIPRAZOLE
     Dosage: 18 MG, QD
     Route: 067
     Dates: start: 20130327
  6. ABILIFY [Suspect]
     Active Substance: ARIPIPRAZOLE
     Dosage: 12 MG, QD
     Route: 050
     Dates: start: 20121205, end: 20121225
  7. ABILIFY [Suspect]
     Active Substance: ARIPIPRAZOLE
     Dosage: 24 MG, QD
     Route: 067
     Dates: start: 20130109, end: 20130122
  8. ABILIFY [Suspect]
     Active Substance: ARIPIPRAZOLE
     Dosage: 6 MG, QD
     Route: 067
     Dates: start: 20110113, end: 20120111
  9. ABILIFY [Suspect]
     Active Substance: ARIPIPRAZOLE
     Dosage: 30 MG, QD
     Route: 067
     Dates: start: 20130123, end: 201303

REACTIONS (2)
  - Abortion spontaneous [Recovered/Resolved]
  - Exposure via body fluid [Unknown]

NARRATIVE: CASE EVENT DATE: 2013
